FAERS Safety Report 8832078 (Version 2)
Quarter: 2012Q4

REPORT INFORMATION
  Report Type: 
  Country: US (occurrence: US)
  Receive Date: 20121009
  Receipt Date: 20121112
  Transmission Date: 20130627
  Serious: Yes (Hospitalization, Other)
  Sender: FDA-Public Use
  Company Number: US-ROCHE-1143143

PATIENT
  Sex: Female

DRUGS (6)
  1. CELLCEPT [Suspect]
     Indication: PRODUCT USED FOR UNKNOWN INDICATION
     Route: 065
  2. HIZENTRA [Suspect]
     Indication: MUSCULAR WEAKNESS
     Route: 058
  3. SERTRALINE [Concomitant]
  4. GLYBURIDE [Concomitant]
     Route: 065
  5. ZOCOR [Concomitant]
  6. MESTINON [Concomitant]

REACTIONS (2)
  - Cerebrovascular accident [Unknown]
  - Cerebrovascular accident [Recovered/Resolved]
